FAERS Safety Report 17038805 (Version 1)
Quarter: 2019Q4

REPORT INFORMATION
  Report Type: Spontaneous
  Country: CA (occurrence: CA)
  Receive Date: 20191115
  Receipt Date: 20191115
  Transmission Date: 20200122
  Serious: Yes (Other)
  Sender: FDA-Public Use
  Company Number: CA-GLAXOSMITHKLINE-CA2019GSK204958

PATIENT
  Sex: Female

DRUGS (26)
  1. LORAZEPAM. [Suspect]
     Active Substance: LORAZEPAM
     Indication: SUBSTANCE DEPENDENCE
     Dosage: UNK
     Route: 065
  2. LORAZEPAM. [Suspect]
     Active Substance: LORAZEPAM
     Indication: SUBSTANCE ABUSE
  3. DEMEROL [Suspect]
     Active Substance: MEPERIDINE HYDROCHLORIDE
     Indication: SUBSTANCE DEPENDENCE
  4. FENTANYL. [Suspect]
     Active Substance: FENTANYL
     Indication: SUBSTANCE DEPENDENCE
     Dosage: UNK
     Route: 065
  5. FENTANYL. [Suspect]
     Active Substance: FENTANYL
     Indication: SUBSTANCE ABUSE
  6. COCAINE [Suspect]
     Active Substance: COCAINE
     Indication: SUBSTANCE DEPENDENCE
     Dosage: UNK
     Route: 065
  7. HYDROMORPHONE HYDROCHLORIDE. [Suspect]
     Active Substance: HYDROMORPHONE HYDROCHLORIDE
     Indication: SUBSTANCE DEPENDENCE
     Dosage: UNK
     Route: 065
  8. ECSTASY [Suspect]
     Active Substance: MIDOMAFETAMINE
     Indication: SUBSTANCE DEPENDENCE
     Dosage: UNK
     Route: 065
  9. NICOTINE. [Suspect]
     Active Substance: NICOTINE
     Indication: SUBSTANCE DEPENDENCE
     Dosage: UNK
     Route: 065
  10. MARIJUANA [Suspect]
     Active Substance: CANNABIS SATIVA SUBSP. INDICA TOP
     Indication: SUBSTANCE ABUSE
  11. CODEINE [Suspect]
     Active Substance: CODEINE
     Indication: SUBSTANCE ABUSE
  12. ALCOHOL. [Suspect]
     Active Substance: ALCOHOL
     Indication: SUBSTANCE ABUSE
  13. ACETYLSALICYLIC ACID + CAFFEINE + CODEINE PHOSPHATE + PHENOBARBITAL [Suspect]
     Active Substance: ASPIRIN\CAFFEINE\CODEINE\PHENOBARBITAL
     Indication: SUBSTANCE ABUSE
  14. ALCOHOL. [Suspect]
     Active Substance: ALCOHOL
     Indication: SUBSTANCE DEPENDENCE
     Dosage: UNK
     Route: 065
  15. HYDROMORPHONE HYDROCHLORIDE. [Suspect]
     Active Substance: HYDROMORPHONE HYDROCHLORIDE
     Indication: SUBSTANCE ABUSE
  16. GRAVOL [Suspect]
     Active Substance: DIMENHYDRINATE
     Indication: SUBSTANCE DEPENDENCE
     Dosage: UNK
     Route: 065
  17. ECSTASY [Suspect]
     Active Substance: MIDOMAFETAMINE
     Indication: SUBSTANCE ABUSE
  18. MARIJUANA [Suspect]
     Active Substance: CANNABIS SATIVA SUBSP. INDICA TOP
     Indication: SUBSTANCE DEPENDENCE
     Dosage: UNK
     Route: 065
  19. CODEINE [Suspect]
     Active Substance: CODEINE
     Indication: SUBSTANCE DEPENDENCE
     Dosage: UNK
     Route: 065
  20. ACETAMINOPHEN + BUTALBITAL + CAFFEINE + CODEINE [Suspect]
     Active Substance: ACETAMINOPHEN\BUTALBITAL\CAFFEINE\CODEINE PHOSPHATE
     Indication: SUBSTANCE DEPENDENCE
     Dosage: UNK
     Route: 065
  21. ACETAMINOPHEN + BUTALBITAL + CAFFEINE + CODEINE [Suspect]
     Active Substance: ACETAMINOPHEN\BUTALBITAL\CAFFEINE\CODEINE PHOSPHATE
     Indication: SUBSTANCE ABUSE
  22. ACETYLSALICYLIC ACID + CAFFEINE + CODEINE PHOSPHATE + PHENOBARBITAL [Suspect]
     Active Substance: ASPIRIN\CAFFEINE\CODEINE\PHENOBARBITAL
     Indication: SUBSTANCE DEPENDENCE
     Dosage: UNK
     Route: 065
  23. GRAVOL [Suspect]
     Active Substance: DIMENHYDRINATE
     Indication: SUBSTANCE ABUSE
  24. COCAINE [Suspect]
     Active Substance: COCAINE
     Indication: SUBSTANCE ABUSE
  25. NICOTINE. [Suspect]
     Active Substance: NICOTINE
     Indication: SUBSTANCE ABUSE
  26. DEMEROL [Suspect]
     Active Substance: MEPERIDINE HYDROCHLORIDE
     Indication: SUBSTANCE ABUSE
     Dosage: UNK
     Route: 065

REACTIONS (2)
  - Substance dependence [Unknown]
  - Substance abuse [Unknown]
